FAERS Safety Report 8452796 (Version 2)
Quarter: 2013Q2

REPORT INFORMATION
  Report Type: Report from Study
  Country: JP (occurrence: JP)
  Receive Date: 20120312
  Receipt Date: 20130605
  Transmission Date: 20140414
  Serious: Yes (Death, Hospitalization)
  Sender: FDA-Public Use
  Company Number: JP-BRISTOL-MYERS SQUIBB COMPANY-15514144

PATIENT
  Age: 71 Year
  Sex: Female
  Weight: 52.9 kg

DRUGS (3)
  1. SPRYCEL [Suspect]
     Indication: CHRONIC MYELOID LEUKAEMIA
     Dosage: DURATION OF THERAPY:4D?140MG:07JAN11-11JAN11(5D)
     Route: 048
     Dates: start: 20110107, end: 20110111
  2. ALOSITOL [Concomitant]
     Indication: PROPHYLAXIS
     Dosage: TAB
     Route: 048
     Dates: start: 20110107, end: 20110111
  3. PARIET [Concomitant]
     Indication: PROPHYLAXIS
     Dosage: TABS
     Route: 048

REACTIONS (2)
  - Malignant neoplasm progression [Fatal]
  - Interstitial lung disease [Recovered/Resolved]
